FAERS Safety Report 6366707-4 (Version None)
Quarter: 2009Q3

REPORT INFORMATION
  Report Type: 
  Country: None (occurrence: None)
  Receive Date: 20090921
  Receipt Date: 20090909
  Transmission Date: 20100115
  Serious: Yes (Other)
  Sender: FDA-Public Use
  Company Number: US-PFIZER INC-2008086805

PATIENT
  Sex: Male
  Weight: 75 kg

DRUGS (4)
  1. LIPITOR [Suspect]
     Indication: MYOCARDIAL INFARCTION
     Dosage: UNK
     Dates: start: 20060101, end: 20080101
  2. EFFEXOR [Concomitant]
  3. ACETYLSALICYLIC ACID [Concomitant]
  4. TOPROL-XL [Concomitant]

REACTIONS (3)
  - ABASIA [None]
  - FATIGUE [None]
  - PAIN IN EXTREMITY [None]
